FAERS Safety Report 22605592 (Version 1)
Quarter: 2023Q2

REPORT INFORMATION
  Report Type: Other
  Country: CA (occurrence: None)
  Receive Date: 20230615
  Receipt Date: 20230615
  Transmission Date: 20230722
  Serious: Yes (Hospitalization, Other)
  Sender: FDA-Public Use
  Company Number: CA-ROCHE-3079842

PATIENT
  Age: 57 Year
  Sex: Male

DRUGS (15)
  1. MYCOPHENOLATE MOFETIL [Suspect]
     Active Substance: MYCOPHENOLATE MOFETIL
     Indication: Antinuclear antibody
     Route: 048
     Dates: start: 202003
  2. MYCOPHENOLATE MOFETIL [Suspect]
     Active Substance: MYCOPHENOLATE MOFETIL
     Route: 048
  3. MYCOPHENOLATE MOFETIL [Suspect]
     Active Substance: MYCOPHENOLATE MOFETIL
     Route: 048
  4. MYCOPHENOLATE MOFETIL [Suspect]
     Active Substance: MYCOPHENOLATE MOFETIL
     Route: 048
  5. PREDNISONE [Suspect]
     Active Substance: PREDNISONE
     Indication: Antinuclear antibody
     Route: 048
     Dates: start: 201703, end: 201703
  6. PREDNISONE [Suspect]
     Active Substance: PREDNISONE
     Route: 048
     Dates: start: 201703
  7. PREDNISONE [Suspect]
     Active Substance: PREDNISONE
     Route: 048
     Dates: start: 201708
  8. PREDNISONE [Suspect]
     Active Substance: PREDNISONE
     Route: 048
  9. PREDNISONE [Suspect]
     Active Substance: PREDNISONE
     Route: 048
     Dates: start: 201802
  10. PREDNISONE [Suspect]
     Active Substance: PREDNISONE
     Route: 048
  11. PREDNISONE [Suspect]
     Active Substance: PREDNISONE
     Route: 048
  12. PREDNISONE [Suspect]
     Active Substance: PREDNISONE
     Route: 061
  13. PREDNISONE [Suspect]
     Active Substance: PREDNISONE
     Route: 048
  14. ADALIMUMAB [Concomitant]
     Active Substance: ADALIMUMAB
     Dates: start: 2019
  15. HUMIRA [Concomitant]
     Active Substance: ADALIMUMAB

REACTIONS (2)
  - Pneumonia [Unknown]
  - Uveitis [Recovered/Resolved]

NARRATIVE: CASE EVENT DATE: 20170601
